FAERS Safety Report 9234516 (Version 1)
Quarter: 2013Q2

REPORT INFORMATION
  Report Type: Spontaneous
  Country: US (occurrence: US)
  Receive Date: 20130416
  Receipt Date: 20130416
  Transmission Date: 20140414
  Serious: No
  Sender: FDA-Public Use
  Company Number: US-PFIZER INC-2013117204

PATIENT
  Sex: Female

DRUGS (3)
  1. LYRICA [Suspect]
     Dosage: UNK
  2. LYRICA [Suspect]
     Dosage: 100 MG, 2X/DAY
     Dates: start: 20130411
  3. VIMPAT [Concomitant]
     Dosage: UNK

REACTIONS (1)
  - Somnolence [Unknown]
